FAERS Safety Report 12765479 (Version 1)
Quarter: 2016Q3

REPORT INFORMATION
  Report Type: Spontaneous
  Country: US (occurrence: US)
  Receive Date: 20160915
  Receipt Date: 20160915
  Transmission Date: 20161109
  Serious: No
  Sender: FDA-Public Use
  Company Number: None

PATIENT
  Age: 81 Year

DRUGS (1)
  1. SIMPONI [Suspect]
     Active Substance: GOLIMUMAB
     Indication: RHEUMATOID ARTHRITIS
     Route: 058
     Dates: start: 20160623

REACTIONS (4)
  - Erythema [None]
  - Dry mouth [None]
  - Dry skin [None]
  - Oropharyngeal pain [None]

NARRATIVE: CASE EVENT DATE: 20160704
